FAERS Safety Report 14427663 (Version 3)
Quarter: 2018Q2

REPORT INFORMATION
  Report Type: Spontaneous
  Country: DE (occurrence: DE)
  Receive Date: 20180123
  Receipt Date: 20180404
  Transmission Date: 20180711
  Serious: Yes (Other)
  Sender: FDA-Public Use
  Company Number: DE-AMGEN-DEUSP2018008780

PATIENT
  Age: 33 Year
  Sex: Male
  Weight: 84 kg

DRUGS (6)
  1. CELECOXIB. [Concomitant]
     Active Substance: CELECOXIB
     Indication: SPONDYLITIS
     Dosage: 200 MG, QD
  2. SULFASALAZINE. [Concomitant]
     Active Substance: SULFASALAZINE
     Indication: SPONDYLITIS
     Dosage: 1000 MG, BID
  3. ENBREL [Suspect]
     Active Substance: ETANERCEPT
     Indication: SPONDYLITIS
     Dosage: UNK
     Route: 065
     Dates: start: 201704
  4. ENBREL [Suspect]
     Active Substance: ETANERCEPT
     Dosage: 50 MG, QWK
     Route: 058
     Dates: end: 201711
  5. SULFASALAZINE. [Concomitant]
     Active Substance: SULFASALAZINE
     Indication: SPONDYLITIS
  6. CELECOXIB. [Concomitant]
     Active Substance: CELECOXIB
     Indication: SPONDYLITIS

REACTIONS (2)
  - Product use in unapproved indication [Unknown]
  - Seminoma [Unknown]

NARRATIVE: CASE EVENT DATE: 201704
